FAERS Safety Report 21063548 (Version 1)
Quarter: 2022Q3

REPORT INFORMATION
  Report Type: Spontaneous
  Country: US (occurrence: None)
  Receive Date: 20220708
  Receipt Date: 20220708
  Transmission Date: 20221026
  Serious: No
  Sender: FDA-Public Use
  Company Number: None

PATIENT
  Age: 78 Year
  Sex: Male

DRUGS (1)
  1. BEBTELOVIMAB [Suspect]
     Active Substance: BEBTELOVIMAB
     Indication: COVID-19
     Dosage: OTHER FREQUENCY : ONCE;?
     Route: 042
     Dates: start: 20220707, end: 20220707

REACTIONS (5)
  - Feeling abnormal [None]
  - Unresponsive to stimuli [None]
  - Hypoaesthesia [None]
  - Hypoaesthesia [None]
  - Restless legs syndrome [None]

NARRATIVE: CASE EVENT DATE: 20220707
